FAERS Safety Report 7940633-9 (Version None)
Quarter: 2011Q4

REPORT INFORMATION
  Report Type: 
  Country: None (occurrence: None)
  Receive Date: 20111108
  Receipt Date: 20100903
  Transmission Date: 20120403
  Serious: Yes (Other)
  Sender: FDA-Public Use
  Company Number: PHHY2010US59033

PATIENT
  Age: 47 Year
  Sex: Male

DRUGS (15)
  1. METOPROLOL TARTRATE [Concomitant]
  2. ACYCLOVIR [Concomitant]
  3. OXYCONTIN [Concomitant]
  4. ZOMETA [Suspect]
     Indication: MULTIPLE MYELOMA
     Dosage: 4 MG, INTRAVENOUS
     Route: 042
     Dates: start: 20100517
  5. NEURONTIN [Concomitant]
  6. MULTIVITAMINS (ASCORBIC ACID, ERGOCALCIFEROL, FOLIC ACID, NICOTINAMIDE [Concomitant]
  7. SIMVASTATIN [Concomitant]
  8. FOLIC ACID [Concomitant]
  9. REVLIMID [Suspect]
     Indication: MULTIPLE MYELOMA
     Dosage: 10 MG, QD, ORAL ; 10 MG, QOD, ORAL
     Route: 048
     Dates: start: 20100501
  10. REVLIMID [Suspect]
     Indication: MULTIPLE MYELOMA
     Dosage: 10 MG, QD, ORAL ; 10 MG, QOD, ORAL
     Route: 048
     Dates: start: 20100401, end: 20100501
  11. LASIX [Concomitant]
  12. DIURETICS (NO INGREDIENTS/SUBSTANCES) [Concomitant]
  13. COMPAZINE [Concomitant]
  14. BACTRIM DS [Concomitant]
  15. BENICAR HCT [Concomitant]

REACTIONS (3)
  - RENAL FAILURE ACUTE [None]
  - BLOOD CALCIUM DECREASED [None]
  - OEDEMA PERIPHERAL [None]
